FAERS Safety Report 4514108-3 (Version None)
Quarter: 2004Q4

REPORT INFORMATION
  Report Type: 
  Country: None (occurrence: None)
  Receive Date: 20041124
  Receipt Date: 20041116
  Transmission Date: 20050328
  Serious: Yes (Hospitalization)
  Sender: FDA-Public Use
  Company Number: MK200411-0171-1

PATIENT
  Age: 69 Year
  Sex: Female

DRUGS (10)
  1. ANAFRANIL CAP [Suspect]
     Dosage: 75MG, DAILY
     Dates: start: 20031121, end: 20041022
  2. ZOLEDRONATE [Suspect]
     Dates: start: 20020730, end: 20041022
  3. KETOPROFEN [Concomitant]
  4. CALCIUM [Concomitant]
  5. GELUBRANE [Concomitant]
  6. HALDOL [Concomitant]
  7. MOPRAL [Concomitant]
  8. OROCAL [Concomitant]
  9. SULFARLEM [Concomitant]
  10. VITAMIN D [Concomitant]

REACTIONS (3)
  - CONDITION AGGRAVATED [None]
  - DEPRESSION [None]
  - HALLUCINATION, VISUAL [None]
